FAERS Safety Report 22361099 (Version 2)
Quarter: 2023Q2

REPORT INFORMATION
  Report Type: Other
  Country: US (occurrence: None)
  Receive Date: 20230524
  Receipt Date: 20230531
  Transmission Date: 20230722
  Serious: Yes (Death)
  Sender: FDA-Public Use
  Company Number: US-ROCHE-3355554

PATIENT
  Age: 56 Year
  Sex: Female

DRUGS (5)
  1. ALECENSA [Suspect]
     Active Substance: ALECTINIB HYDROCHLORIDE
     Indication: Lung neoplasm malignant
     Dosage: TAKE 150 MG 4 CAPSULES (600 MG) TWICE A DAY
     Route: 048
  2. ELIQUIS [Concomitant]
     Active Substance: APIXABAN
  3. MARINOL [Concomitant]
     Active Substance: DRONABINOL
  4. ATIVAN [Concomitant]
     Active Substance: LORAZEPAM
  5. HYDROMORPHONE [Concomitant]
     Active Substance: HYDROMORPHONE

REACTIONS (1)
  - Death [Fatal]
